FAERS Safety Report 7618966-5 (Version None)
Quarter: 2011Q3

REPORT INFORMATION
  Report Type: 
  Country: None (occurrence: None)
  Receive Date: 20110718
  Receipt Date: 20110713
  Transmission Date: 20111222
  Serious: Yes (Life-Threatening, Other)
  Sender: FDA-Public Use
  Company Number: GB-PFIZER INC-2011135269

PATIENT
  Age: 42 Year
  Sex: Female
  Weight: 88 kg

DRUGS (3)
  1. VARENICLINE TARTRATE [Suspect]
     Dosage: 1 MG, 2X/DAY
     Route: 048
     Dates: start: 20110513, end: 20110616
  2. VARENICLINE TARTRATE [Suspect]
     Dosage: 1 MG, UNK
     Dates: start: 20110101, end: 20110101
  3. VARENICLINE TARTRATE [Suspect]
     Indication: SMOKING CESSATION THERAPY
     Dosage: 0.5 MG, UNK
     Dates: start: 20110101, end: 20110101

REACTIONS (6)
  - DEPRESSED MOOD [None]
  - IRRITABILITY [None]
  - CRYING [None]
  - AGGRESSION [None]
  - ANGER [None]
  - MOOD SWINGS [None]
